FAERS Safety Report 11784834 (Version 3)
Quarter: 2016Q1

REPORT INFORMATION
  Report Type: Spontaneous
  Country: JP (occurrence: JP)
  Receive Date: 20151130
  Receipt Date: 20160323
  Transmission Date: 20160525
  Serious: Yes (Life-Threatening, Hospitalization, Other)
  Sender: FDA-Public Use
  Company Number: JP-009507513-1511JPN012629

PATIENT
  Age: 25 Year
  Sex: Female
  Weight: 40 kg

DRUGS (7)
  1. RIVOTRIL [Suspect]
     Active Substance: CLONAZEPAM
     Dosage: DAILY DOSAGE UNKNOWN
     Route: 048
  2. ABILIFY [Suspect]
     Active Substance: ARIPIPRAZOLE
     Dosage: DAILY DOSE UNKNOWN
     Route: 048
  3. ARTANE [Suspect]
     Active Substance: TRIHEXYPHENIDYL HYDROCHLORIDE
     Dosage: DAILY DOSAGE UNKNOWN
     Route: 048
  4. BELSOMRA [Suspect]
     Active Substance: SUVOREXANT
     Dosage: DAILY DOSE UNKNOWN
     Route: 048
  5. BELSOMRA [Suspect]
     Active Substance: SUVOREXANT
     Indication: SUICIDE ATTEMPT
     Dosage: 840 MG, ONCE
     Route: 048
     Dates: start: 20151113, end: 20151113
  6. ETIZOLAM [Suspect]
     Active Substance: ETIZOLAM
     Indication: SUICIDE ATTEMPT
     Dosage: 12 DF, ONCE
     Route: 048
     Dates: start: 20151113, end: 20151113
  7. ETIZOLAM [Suspect]
     Active Substance: ETIZOLAM
     Dosage: DAILY DOSE UNKNOWN
     Route: 048

REACTIONS (5)
  - Suicide attempt [Recovering/Resolving]
  - Toxicity to various agents [Recovered/Resolved]
  - Altered state of consciousness [Recovered/Resolved]
  - Intentional overdose [Unknown]
  - Somnolence [Recovering/Resolving]

NARRATIVE: CASE EVENT DATE: 20151113
